FAERS Safety Report 14716225 (Version 1)
Quarter: 2018Q2

REPORT INFORMATION
  Report Type: Spontaneous
  Country: DE (occurrence: DE)
  Receive Date: 20180404
  Receipt Date: 20180404
  Transmission Date: 20180711
  Serious: Yes (Hospitalization)
  Sender: FDA-Public Use
  Company Number: DE-MYLANLABS-2018M1020523

PATIENT
  Age: 75 Year
  Sex: Male
  Weight: 63.8 kg

DRUGS (15)
  1. RAMIPRIL. [Concomitant]
     Active Substance: RAMIPRIL
     Indication: PRODUCT USED FOR UNKNOWN INDICATION
     Dosage: 5 MG, QD (DAILY DOSE: 5 MG MILLIGRAM(S)EVERY DAY)
     Route: 048
  2. SALBUTAMOL [Concomitant]
     Active Substance: ALBUTEROL
     Indication: PRODUCT USED FOR UNKNOWN INDICATION
     Dosage: 0.36 MG, Q2D (DAILY DOSE: 0.36 MG MILLIGRAM(S)EVERY 2 DAY)
     Route: 055
  3. ZOPICLONE [Suspect]
     Active Substance: ZOPICLONE
     Indication: PRODUCT USED FOR UNKNOWN INDICATION
     Dosage: 3.75 MG, QD (DAILY DOSE: 3. 75 MG MILLIGRAM(S)EVERY DAY)
     Route: 048
  4. METAMIZOL                          /06276701/ [Concomitant]
     Active Substance: METAMIZOLE
     Indication: POST HERPETIC NEURALGIA
     Dosage: 3 G, QD (DAILY DOSE: 3 G GRAM(S)EVERY DAY)
     Route: 048
     Dates: start: 20170811
  5. COLECALCIFEROL [Concomitant]
     Active Substance: CHOLECALCIFEROL
     Indication: PRODUCT USED FOR UNKNOWN INDICATION
     Dosage: 1 IU, QW (DAILY DOSE: 1 IU INTERNATIONAL UNIT(S) EVERY WEEK)
  6. ACICLOVIR [Suspect]
     Active Substance: ACYCLOVIR
     Indication: HERPES ZOSTER
     Dosage: 4000 MG, QD (DAILY DOSE: 4000 MG MILLIGRAM(S)EVERY DAY)
     Route: 048
     Dates: start: 20170704, end: 20170711
  7. FOLSAEURE [Concomitant]
     Active Substance: FOLIC ACID
     Indication: PRODUCT USED FOR UNKNOWN INDICATION
     Dosage: 1 DF, Q3D (DAILY DOSE: 1 DF DOSAGE FORM EVERY 3 DAY)
     Route: 048
  8. PANTOPRAZOLE [Suspect]
     Active Substance: PANTOPRAZOLE
     Indication: PRODUCT USED FOR UNKNOWN INDICATION
     Dosage: 40 MG, QD (DAILY DOSE: 40 MG MILLIGRAM(S)EVERY DAY)
     Route: 048
  9. METAMIZOL                          /06276701/ [Suspect]
     Active Substance: METAMIZOLE
     Indication: POST HERPETIC NEURALGIA
     Dosage: 1500 MG, Q2D (DAILY DOSE: 1500 MG MILLIGRAM (S) EVERY DAY)
     Route: 048
     Dates: start: 20170717, end: 20170811
  10. VITAMIN B6 [Concomitant]
     Active Substance: PYRIDOXINE HYDROCHLORIDE
     Indication: PRODUCT USED FOR UNKNOWN INDICATION
     Dosage: 1 DF, Q3D (DAILY DOSE: 1 DF DOSAGE FORM EVERY 3 DAY)
     Route: 048
  11. VITAMIN B12 [Concomitant]
     Active Substance: CYANOCOBALAMIN
     Indication: PRODUCT USED FOR UNKNOWN INDICATION
     Dosage: 1 DF, Q3D (DAILY DOSE: 1 DF DOSAGE FORM EVERY 3 DAY)
     Route: 048
  12. TILIDIN [Suspect]
     Active Substance: NALOXONE HYDROCHLORIDE\TILIDINE HYDROCHLORIDE
     Indication: POST HERPETIC NEURALGIA
     Dosage: 1 DF, QD (DAILY DOSE: 1 DF DOSAGE FORM EVERY DAY)
     Route: 048
     Dates: start: 20170724, end: 20170811
  13. ASPIRIN. [Concomitant]
     Active Substance: ASPIRIN
     Indication: PRODUCT USED FOR UNKNOWN INDICATION
     Dosage: 100 MG, QD (DAILY DOSE: 100 MG MILLIGRAM(S)EVERY DAY)
     Route: 048
  14. PREGABALIN. [Suspect]
     Active Substance: PREGABALIN
     Indication: PRODUCT USED FOR UNKNOWN INDICATION
     Dosage: 100 MG, QD (DAILY DOSE: 100 MG MILLIGRAM(S)EVERY DAY)
     Route: 048
  15. VARDENAFIL [Concomitant]
     Active Substance: VARDENAFIL
     Indication: PRODUCT USED FOR UNKNOWN INDICATION
     Dosage: B. BEDARF
     Route: 048

REACTIONS (7)
  - Hepatic cyst [Recovering/Resolving]
  - Transaminases increased [Recovering/Resolving]
  - Hepatic enzyme increased [Recovering/Resolving]
  - Accessory spleen [Recovering/Resolving]
  - Cholelithiasis [Recovering/Resolving]
  - Cholestasis [Recovering/Resolving]
  - Food interaction [Recovering/Resolving]

NARRATIVE: CASE EVENT DATE: 20170801
